FAERS Safety Report 5942966-4 (Version None)
Quarter: 2008Q4

REPORT INFORMATION
  Report Type: 
  Country: None (occurrence: None)
  Receive Date: 20081106
  Receipt Date: 20081006
  Transmission Date: 20090506
  Serious: No
  Sender: FDA-Public Use
  Company Number: US-BAYER-200835552NA

PATIENT
  Age: 48 Year
  Sex: Female
  Weight: 82 kg

DRUGS (2)
  1. MIRENA [Suspect]
     Indication: VAGINAL HAEMORRHAGE
     Route: 015
     Dates: start: 20080819
  2. NORETHINDRONE [Concomitant]
     Indication: VAGINAL HAEMORRHAGE
     Dosage: TOTAL DAILY DOSE: 10 MG
     Dates: start: 20080701, end: 20080801

REACTIONS (5)
  - ABDOMINAL PAIN [None]
  - GENITAL PAIN [None]
  - IUCD COMPLICATION [None]
  - PENILE PAIN [None]
  - VAGINAL HAEMORRHAGE [None]
